FAERS Safety Report 6279985-7 (Version None)
Quarter: 2009Q3

REPORT INFORMATION
  Report Type: 
  Country: None (occurrence: None)
  Receive Date: 20090723
  Receipt Date: 20090501
  Transmission Date: 20100115
  Serious: No
  Sender: FDA-Public Use
  Company Number: US-AMGEN-KDL345555

PATIENT
  Sex: Female
  Weight: 57.2 kg

DRUGS (4)
  1. PROCRIT [Suspect]
     Indication: ANAEMIA
     Dates: start: 20090423
  2. NORVASC [Concomitant]
  3. BENICAR [Concomitant]
  4. ZIAC [Concomitant]

REACTIONS (3)
  - OEDEMA PERIPHERAL [None]
  - RHEUMATOID ARTHRITIS [None]
  - STRESS [None]
